FAERS Safety Report 7265214-4 (Version None)
Quarter: 2011Q1

REPORT INFORMATION
  Report Type: 
  Country: None (occurrence: None)
  Receive Date: 20110131
  Receipt Date: 20110120
  Transmission Date: 20110831
  Serious: Yes (Hospitalization)
  Sender: FDA-Public Use
  Company Number: CA-JNJFOC-20100501341

PATIENT
  Sex: Female
  Weight: 88.5 kg

DRUGS (9)
  1. REMICADE [Suspect]
     Route: 042
  2. TYLENOL (CAPLET) [Concomitant]
     Indication: PAIN MANAGEMENT
     Route: 048
  3. METHOTREXATE [Concomitant]
     Indication: RHEUMATOID ARTHRITIS
     Route: 048
  4. MAALOX [Concomitant]
  5. FOLIC ACID [Concomitant]
     Route: 048
  6. REMICADE [Suspect]
     Indication: RHEUMATOID ARTHRITIS
     Route: 042
  7. REMICADE [Suspect]
     Route: 042
  8. PANTOLOC [Concomitant]
     Route: 048
  9. OMEGA VITAMIN [Concomitant]

REACTIONS (1)
  - BREAST CANCER [None]
